FAERS Safety Report 14135974 (Version 2)
Quarter: 2017Q4

REPORT INFORMATION
  Report Type: Other
  Country: GB (occurrence: GB)
  Receive Date: 20171027
  Receipt Date: 20171116
  Transmission Date: 20180321
  Serious: Yes (Disabling, Other)
  Sender: FDA-Public Use
  Company Number: GB-APOTEX-2017AP020136

PATIENT
  Age: 72 Year
  Sex: Male
  Weight: 101 kg

DRUGS (7)
  1. BENDROFLUMETHIAZIDE [Concomitant]
     Active Substance: BENDROFLUMETHIAZIDE
     Indication: PRODUCT USED FOR UNKNOWN INDICATION
     Dosage: 2.5 MG, UNK
     Route: 065
  2. TAMSULOSIN [Concomitant]
     Active Substance: TAMSULOSIN
     Indication: PRODUCT USED FOR UNKNOWN INDICATION
     Dosage: 400 ?G, UNK
     Route: 065
  3. WARFARIN [Concomitant]
     Active Substance: WARFARIN
     Indication: PRODUCT USED FOR UNKNOWN INDICATION
     Dosage: 10 MG, UNK
     Route: 065
  4. EZETIMIBE 10 MG TABLETS [Suspect]
     Active Substance: EZETIMIBE
     Indication: HYPERCHOLESTEROLAEMIA
     Dosage: 10 MG, UNK
     Route: 048
     Dates: start: 2011, end: 20170927
  5. BISOPROLOL [Concomitant]
     Active Substance: BISOPROLOL
     Indication: PRODUCT USED FOR UNKNOWN INDICATION
     Dosage: 7.5 MG, UNK
     Route: 065
  6. FINASTERIDE. [Concomitant]
     Active Substance: FINASTERIDE
     Indication: PRODUCT USED FOR UNKNOWN INDICATION
     Dosage: 5 MG, UNK
     Route: 065
  7. LACIDIPINE [Concomitant]
     Active Substance: LACIDIPINE
     Indication: PRODUCT USED FOR UNKNOWN INDICATION
     Dosage: 6 MG, UNK
     Route: 065

REACTIONS (6)
  - Gait disturbance [Recovering/Resolving]
  - Arthralgia [Recovering/Resolving]
  - Movement disorder [Recovering/Resolving]
  - Lethargy [Recovering/Resolving]
  - Myalgia [Recovering/Resolving]
  - Aggression [Recovering/Resolving]

NARRATIVE: CASE EVENT DATE: 201703
